FAERS Safety Report 5372708-5 (Version None)
Quarter: 2007Q2

REPORT INFORMATION
  Report Type: 
  Country: None (occurrence: None)
  Receive Date: 20070627
  Receipt Date: 20070618
  Transmission Date: 20071010
  Serious: Yes (Other)
  Sender: FDA-Public Use
  Company Number: US-PFIZER INC-2007051240

PATIENT
  Age: 50 Year
  Sex: Female

DRUGS (1)
  1. INHALED HUMAN INSULIN [Suspect]

REACTIONS (1)
  - THROAT TIGHTNESS [None]
